FAERS Safety Report 8239313-4 (Version None)
Quarter: 2012Q1

REPORT INFORMATION
  Report Type: 
  Country: None (occurrence: None)
  Receive Date: 20120328
  Receipt Date: 20120323
  Transmission Date: 20120608
  Serious: Yes (Other)
  Sender: FDA-Public Use
  Company Number: US-AMGEN-USASP2012018808

PATIENT
  Sex: Female

DRUGS (2)
  1. ANTINEOPLASTIC AGENTS [Concomitant]
     Indication: BREAST CANCER
  2. NEULASTA [Suspect]
     Indication: NEUTROPENIA

REACTIONS (2)
  - THERAPEUTIC RESPONSE DECREASED [None]
  - FEBRILE NEUTROPENIA [None]
